FAERS Safety Report 5056996-0 (Version None)
Quarter: 2006Q2

REPORT INFORMATION
  Report Type: 
  Country: None (occurrence: None)
  Receive Date: 20060622
  Receipt Date: 20050927
  Transmission Date: 20061013
  Serious: Yes (Hospitalization)
  Sender: FDA-Public Use
  Company Number: US-JNJFOC-20050704788

PATIENT
  Age: 61 Year
  Sex: Male
  Weight: 79.3795 kg

DRUGS (6)
  1. FENTANYL TRANSDERMAL SYSTEM [Suspect]
     Indication: PAIN
     Dosage: 25 UG/HR, 1 IN 48 HOUR, TRANSDERMAL
     Route: 062
     Dates: start: 20050204, end: 20050401
  2. DURAGESIC-100 [Concomitant]
     Indication: PAIN
     Dosage: 50 UG/HR, 1 IN 48 HOUR, TRANSDERMAL
     Route: 062
     Dates: start: 20040101, end: 20050201
  3. ZOCOR [Concomitant]
  4. NORVASC (AMLODIPINE RESILATE) [Concomitant]
  5. KETOPROFEN [Concomitant]
  6. PLAQUENIL [Concomitant]

REACTIONS (5)
  - CHEST PAIN [None]
  - FATIGUE [None]
  - HYPERHIDROSIS [None]
  - PNEUMONIA [None]
  - URTICARIA [None]
